FAERS Safety Report 16844667 (Version 1)
Quarter: 2019Q4

REPORT INFORMATION
  Report Type: Spontaneous
  Country: US (occurrence: US)
  Receive Date: 20190924
  Receipt Date: 20190924
  Transmission Date: 20200122
  Serious: Yes (Life-Threatening)
  Sender: FDA-Public Use
  Company Number: None

PATIENT
  Age: 61 Year
  Sex: Female
  Weight: 76.5 kg

DRUGS (1)
  1. SKYRIZI [Suspect]
     Active Substance: RISANKIZUMAB-RZAA
     Indication: PSORIASIS
     Dosage: ?          OTHER FREQUENCY:ONCE;?
     Route: 058
     Dates: start: 20190730, end: 20190911

REACTIONS (5)
  - Urinary tract infection [None]
  - Allergic eosinophilia [None]
  - Drug eruption [None]
  - Renal impairment [None]
  - Drug hypersensitivity [None]

NARRATIVE: CASE EVENT DATE: 20190911
